FAERS Safety Report 25342564 (Version 2)
Quarter: 2025Q3

REPORT INFORMATION
  Report Type: Spontaneous
  Country: CN (occurrence: CN)
  Receive Date: 20250521
  Receipt Date: 20250707
  Transmission Date: 20251020
  Serious: Yes (Other)
  Sender: COHERUS
  Company Number: CN-SHANGHAI JUNSHI BIOSCIENCES CO., LTD.-CN2025014165

PATIENT

DRUGS (28)
  1. TORIPALIMAB [Suspect]
     Active Substance: TORIPALIMAB
     Indication: Small cell lung cancer extensive stage
     Route: 041
     Dates: start: 20250416, end: 20250416
  2. TORIPALIMAB [Suspect]
     Active Substance: TORIPALIMAB
     Indication: Metastases to lymph nodes
     Route: 041
     Dates: start: 20250418, end: 20250418
  3. TORIPALIMAB [Suspect]
     Active Substance: TORIPALIMAB
     Indication: Metastases to heart
     Route: 041
     Dates: start: 20250507, end: 20250507
  4. TORIPALIMAB [Suspect]
     Active Substance: TORIPALIMAB
     Indication: Metastases to the mediastinum
     Route: 041
     Dates: start: 20250509
  5. ETOPOSIDE [Suspect]
     Active Substance: ETOPOSIDE
     Indication: Small cell lung cancer extensive stage
     Dosage: 160 MG (D1-D3, QD)
     Route: 041
     Dates: start: 20250416, end: 20250418
  6. ETOPOSIDE [Suspect]
     Active Substance: ETOPOSIDE
     Indication: Metastases to lymph nodes
     Route: 041
     Dates: start: 20250416, end: 20250418
  7. ETOPOSIDE [Suspect]
     Active Substance: ETOPOSIDE
     Indication: Metastases to heart
     Route: 041
     Dates: start: 20250416, end: 20250418
  8. ETOPOSIDE [Suspect]
     Active Substance: ETOPOSIDE
     Indication: Metastases to the mediastinum
     Route: 041
     Dates: start: 20250507, end: 20250509
  9. ETOPOSIDE [Suspect]
     Active Substance: ETOPOSIDE
     Indication: Pericardial effusion malignant
     Route: 041
     Dates: start: 20250507, end: 20250509
  10. ETOPOSIDE [Suspect]
     Active Substance: ETOPOSIDE
     Route: 041
     Dates: start: 20250507, end: 20250509
  11. ETOPOSIDE [Suspect]
     Active Substance: ETOPOSIDE
     Route: 041
     Dates: start: 20250509
  12. CISPLATIN [Suspect]
     Active Substance: CISPLATIN
     Indication: Small cell lung cancer extensive stage
     Dosage: 40 MG (D1-D3, QD)
     Route: 041
     Dates: start: 20250416, end: 20250418
  13. CISPLATIN [Suspect]
     Active Substance: CISPLATIN
     Indication: Metastases to lymph nodes
     Route: 041
     Dates: start: 20250416, end: 20250418
  14. CISPLATIN [Suspect]
     Active Substance: CISPLATIN
     Indication: Metastases to heart
     Route: 041
     Dates: start: 20250507, end: 20250509
  15. CISPLATIN [Suspect]
     Active Substance: CISPLATIN
     Indication: Metastases to the mediastinum
     Route: 041
     Dates: start: 20250509
  16. CISPLATIN [Suspect]
     Active Substance: CISPLATIN
     Indication: Pericardial effusion malignant
  17. SODIUM CHLORIDE [Concomitant]
     Active Substance: SODIUM CHLORIDE
     Indication: Medication dilution
     Route: 041
     Dates: start: 20250416, end: 20250416
  18. SODIUM CHLORIDE [Concomitant]
     Active Substance: SODIUM CHLORIDE
     Route: 041
     Dates: start: 20250416, end: 20250416
  19. SODIUM CHLORIDE [Concomitant]
     Active Substance: SODIUM CHLORIDE
     Route: 041
     Dates: start: 20250507, end: 20250507
  20. SODIUM CHLORIDE [Concomitant]
     Active Substance: SODIUM CHLORIDE
     Route: 041
     Dates: start: 20250509, end: 20250509
  21. SODIUM CHLORIDE [Concomitant]
     Active Substance: SODIUM CHLORIDE
     Indication: Medication dilution
     Dosage: 500 ML (D1-D3, QD)
     Route: 041
     Dates: start: 20250416, end: 20250418
  22. SODIUM CHLORIDE [Concomitant]
     Active Substance: SODIUM CHLORIDE
     Route: 041
     Dates: start: 20250416, end: 20250418
  23. SODIUM CHLORIDE [Concomitant]
     Active Substance: SODIUM CHLORIDE
     Route: 041
     Dates: start: 20250507, end: 20250509
  24. SODIUM CHLORIDE [Concomitant]
     Active Substance: SODIUM CHLORIDE
     Route: 041
     Dates: start: 20250507, end: 20250509
  25. SODIUM CHLORIDE [Concomitant]
     Active Substance: SODIUM CHLORIDE
     Indication: Medication dilution
     Dosage: 240 ML (D1-D3, QD)
     Route: 041
     Dates: start: 20250416, end: 20250418
  26. SODIUM CHLORIDE [Concomitant]
     Active Substance: SODIUM CHLORIDE
     Dosage: 240 ML (D1-D3, QD)
     Route: 041
     Dates: start: 20250416, end: 20250418
  27. SODIUM CHLORIDE [Concomitant]
     Active Substance: SODIUM CHLORIDE
     Route: 041
     Dates: start: 20250507, end: 20250509
  28. SODIUM CHLORIDE [Concomitant]
     Active Substance: SODIUM CHLORIDE
     Route: 041
     Dates: start: 20250507, end: 20250509

REACTIONS (2)
  - Myelosuppression [Recovering/Resolving]
  - Platelet count decreased [Recovering/Resolving]

NARRATIVE: CASE EVENT DATE: 20250425
